FAERS Safety Report 5284949-6 (Version None)
Quarter: 2007Q1

REPORT INFORMATION
  Report Type: 
  Country: None (occurrence: None)
  Receive Date: 20061229
  Receipt Date: 20060912
  Transmission Date: 20070707
  Serious: Yes (Other)
  Sender: FDA-Public Use
  Company Number: 2006UW17960

PATIENT
  Age: 42 Year
  Sex: Female

DRUGS (10)
  1. CRESTOR [Suspect]
     Dosage: 5 MG PO
  2. ASPIRIN [Concomitant]
  3. XANAX [Concomitant]
  4. TOPAMAX [Concomitant]
  5. CYMBALTA [Concomitant]
  6. PREVACID [Concomitant]
  7. PLAQUENIL [Concomitant]
  8. COUMADIN [Concomitant]
  9. CELEBREX [Concomitant]
  10. ZELNORM [Concomitant]

REACTIONS (1)
  - ECCHYMOSIS [None]
